FAERS Safety Report 7964140-2 (Version None)
Quarter: 2011Q4

REPORT INFORMATION
  Report Type: 
  Country: None (occurrence: None)
  Receive Date: 20111206
  Receipt Date: 20111124
  Transmission Date: 20120403
  Serious: Yes (Other)
  Sender: FDA-Public Use
  Company Number: DE-GDP-11410324

PATIENT
  Sex: Male

DRUGS (3)
  1. LORZAAR ( TO UNKNOWN) [Concomitant]
  2. TALSO UNO ( TO UNKNOWN) [Concomitant]
  3. METROLOTION [Suspect]
     Indication: ROSACEA
     Dosage: (1 DF BID TOPICAL)
     Route: 061

REACTIONS (6)
  - NAUSEA [None]
  - DIZZINESS [None]
  - RESPIRATORY DISTRESS [None]
  - RESTLESSNESS [None]
  - PRURITUS GENERALISED [None]
  - DISCOMFORT [None]
